FAERS Safety Report 16615626 (Version 2)
Quarter: 2019Q3

REPORT INFORMATION
  Report Type: Spontaneous
  Country: TR (occurrence: TR)
  Receive Date: 20190723
  Receipt Date: 20190812
  Transmission Date: 20191004
  Serious: Yes (Other)
  Sender: FDA-Public Use
  Company Number: TR-TEVA-2019-TR-1081532

PATIENT
  Age: 20 Month
  Sex: Male

DRUGS (7)
  1. VINCRISTINE [Suspect]
     Active Substance: VINCRISTINE
     Indication: EWING^S SARCOMA METASTATIC
     Dosage: AS A PART OF VAC REGIMEN ADMINISTERED WITH ALTERNATING ICE REGIMEN
     Route: 065
  2. ADRIAMYCIN [Suspect]
     Active Substance: DOXORUBICIN HYDROCHLORIDE
     Indication: EWING^S SARCOMA METASTATIC
     Dosage: AS A PART OF VAC REGIMEN ADMINISTERED WITH ALTERNATING ICE REGIMEN
     Route: 065
  3. CYCLOPHOSPHAMIDE. [Suspect]
     Active Substance: CYCLOPHOSPHAMIDE
     Indication: EWING^S SARCOMA METASTATIC
     Dosage: AS A PART OF VAC REGIMEN ADMINISTERED WITH ALTERNATING ICE REGIMEN
     Route: 065
  4. IFOSFAMIDE. [Concomitant]
     Active Substance: IFOSFAMIDE
     Indication: EWING^S SARCOMA METASTATIC
     Dosage: AS A PART OF ICE REGIMEN ADMINISTERED WITH ALTERNATING VAC REGIMEN
     Route: 065
  5. CARBOPLATIN. [Concomitant]
     Active Substance: CARBOPLATIN
     Indication: EWING^S SARCOMA METASTATIC
     Dosage: AS A PART OF ICE REGIMEN ADMINISTERED WITH ALTERNATING VAC REGIMEN
     Route: 065
  6. ETOPOSIDE. [Concomitant]
     Active Substance: ETOPOSIDE
     Indication: EWING^S SARCOMA METASTATIC
     Dosage: AS A PART OF ICE REGIMEN ADMINISTERED WITH ALTERNATING VAC REGIMEN
     Route: 065
  7. VINCRISTINE [Suspect]
     Active Substance: VINCRISTINE
     Dosage: WEEKLY
     Route: 065

REACTIONS (1)
  - Radiation pneumonitis [Recovered/Resolved]
